FAERS Safety Report 5039347-7 (Version None)
Quarter: 2006Q2

REPORT INFORMATION
  Report Type: 
  Country: None (occurrence: None)
  Receive Date: 20060623
  Receipt Date: 20060612
  Transmission Date: 20061013
  Serious: Yes (Hospitalization, Other)
  Sender: FDA-Public Use
  Company Number: 2006057634

PATIENT
  Age: 48 Year
  Sex: Female
  Weight: 111.1313 kg

DRUGS (5)
  1. CELEBREX [Suspect]
     Indication: ARTHRITIS
     Dosage: 100 MG (100 MG, 1 IN 1 AS NECESSARY)
     Dates: start: 19991227, end: 20010416
  2. CELEBREX [Suspect]
     Indication: BACK PAIN
     Dosage: 100 MG (100 MG, 1 IN 1 AS NECESSARY)
     Dates: start: 19991227, end: 20010416
  3. ULTRAM [Concomitant]
  4. FUROSEMIDE [Concomitant]
  5. PROPOXYPHENE NAPSYLATE W/ACETAMINOPHENE (DEXTROPROPOXYPHENE NAPSILATE, [Concomitant]

REACTIONS (20)
  - ANGER [None]
  - ANXIETY [None]
  - BLOOD CHOLESTEROL INCREASED [None]
  - CORONARY ARTERY STENOSIS [None]
  - DEPRESSION [None]
  - DRUG INEFFECTIVE [None]
  - DYSPNOEA [None]
  - FAECAL INCONTINENCE [None]
  - FALL [None]
  - FLATULENCE [None]
  - IMPAIRED WORK ABILITY [None]
  - IRRITABILITY [None]
  - MYOCARDIAL INFARCTION [None]
  - PREMATURE MENOPAUSE [None]
  - SKELETAL INJURY [None]
  - SOMNOLENCE [None]
  - SYNCOPE [None]
  - THINKING ABNORMAL [None]
  - URINARY INCONTINENCE [None]
  - WEIGHT INCREASED [None]
